FAERS Safety Report 9473682 (Version 1)
Quarter: 2013Q3

REPORT INFORMATION
  Report Type: Spontaneous
  Country: US (occurrence: US)
  Receive Date: 20130823
  Receipt Date: 20130823
  Transmission Date: 20140515
  Serious: No
  Sender: FDA-Public Use
  Company Number: US-BRISTOL-MYERS SQUIBB COMPANY-16889685

PATIENT
  Age: 56 Year
  Sex: Female

DRUGS (4)
  1. SPRYCEL [Suspect]
  2. CARVEDILOL [Concomitant]
  3. CYTOMEL [Concomitant]
  4. LEXAPRO [Concomitant]

REACTIONS (1)
  - Feeling cold [Unknown]
